FAERS Safety Report 7233579-5 (Version None)
Quarter: 2011Q1

REPORT INFORMATION
  Report Type: 
  Country: None (occurrence: None)
  Receive Date: 20110119
  Receipt Date: 20100129
  Transmission Date: 20110831
  Serious: No
  Sender: FDA-Public Use
  Company Number: US-PFIZER INC-2010010014

PATIENT
  Sex: Female
  Weight: 75.3 kg

DRUGS (7)
  1. AROMASIN [Suspect]
     Indication: BONE NEOPLASM
  2. CALCIUM [Concomitant]
     Dosage: UNK
  3. WARFARIN SODIUM [Suspect]
     Dosage: UNK
  4. LASIX [Concomitant]
     Dosage: 40 MG, UNK
  5. LEVOTHYROXINE SODIUM [Concomitant]
     Dosage: 75 UG, UNK
  6. DEXAMETHASONE [Concomitant]
     Dosage: 0.5 MG, UNK
  7. AROMASIN [Suspect]
     Indication: BREAST CANCER
     Dosage: 3 MG, 1X/DAY
     Dates: start: 20090101

REACTIONS (6)
  - FATIGUE [None]
  - EYE DISORDER [None]
  - FREQUENT BOWEL MOVEMENTS [None]
  - FLATULENCE [None]
  - DIARRHOEA [None]
  - DIZZINESS [None]
